FAERS Safety Report 18291630 (Version 3)
Quarter: 2020Q4

REPORT INFORMATION
  Report Type: Spontaneous
  Country: US (occurrence: US)
  Receive Date: 20200921
  Receipt Date: 20201214
  Transmission Date: 20210113
  Serious: Yes (Other)
  Sender: FDA-Public Use
  Company Number: US-PFIZER INC-2020360099

PATIENT
  Age: 58 Year
  Sex: Female

DRUGS (1)
  1. IBRANCE [Suspect]
     Active Substance: PALBOCICLIB
     Indication: BREAST CANCER FEMALE
     Dosage: 125 MG

REACTIONS (14)
  - Blood pressure increased [Not Recovered/Not Resolved]
  - Neoplasm progression [Unknown]
  - Diarrhoea [Not Recovered/Not Resolved]
  - Cystitis [Recovering/Resolving]
  - Hyperpyrexia [Recovered/Resolved]
  - Feeling hot [Unknown]
  - Condition aggravated [Not Recovered/Not Resolved]
  - Frequent bowel movements [Not Recovered/Not Resolved]
  - Balance disorder [Unknown]
  - Condition aggravated [Unknown]
  - Joint injury [Unknown]
  - Appetite disorder [Unknown]
  - Fall [Unknown]
  - Cancer pain [Unknown]

NARRATIVE: CASE EVENT DATE: 2020
